FAERS Safety Report 23253196 (Version 4)
Quarter: 2025Q1

REPORT INFORMATION
  Report Type: Spontaneous
  Country: CA (occurrence: CA)
  Receive Date: 20231201
  Receipt Date: 20250226
  Transmission Date: 20250409
  Serious: Yes (Death, Hospitalization, Other)
  Sender: SANDOZ
  Company Number: CA-002147023-NVSC2022CA283120

PATIENT
  Age: 54 Year
  Sex: Male

DRUGS (187)
  1. CELECOXIB [Suspect]
     Active Substance: CELECOXIB
     Indication: Psychotic disorder
     Route: 065
  2. CITALOPRAM [Suspect]
     Active Substance: CITALOPRAM
     Indication: Mental disorder
     Route: 065
  3. RISPERIDONE [Suspect]
     Active Substance: RISPERIDONE
     Indication: Depression
     Route: 065
  4. RITONAVIR [Suspect]
     Active Substance: RITONAVIR
     Indication: Depression
     Route: 065
  5. TENOFOVIR DISOPROXIL FUMARATE [Suspect]
     Active Substance: TENOFOVIR DISOPROXIL FUMARATE
     Indication: Product used for unknown indication
     Route: 065
  6. ATAZANAVIR SULFATE [Concomitant]
     Active Substance: ATAZANAVIR SULFATE
     Indication: Product used for unknown indication
     Route: 065
  7. EFAVIRENZ [Concomitant]
     Active Substance: EFAVIRENZ
     Indication: Product used for unknown indication
     Route: 065
  8. EMTRIVA [Concomitant]
     Active Substance: EMTRICITABINE
     Indication: Product used for unknown indication
     Route: 065
  9. ENFUVIRTIDE [Concomitant]
     Active Substance: ENFUVIRTIDE
     Indication: HIV infection
     Dosage: UNK, BID (2 EVERY 1 DAY) (FILM-COATED TABLET)
     Route: 048
  10. ENFUVIRTIDE [Concomitant]
     Active Substance: ENFUVIRTIDE
     Route: 057
  11. ENFUVIRTIDE [Concomitant]
     Active Substance: ENFUVIRTIDE
     Route: 058
  12. ENFUVIRTIDE [Concomitant]
     Active Substance: ENFUVIRTIDE
     Route: 065
  13. LOPINAVIR [Concomitant]
     Active Substance: LOPINAVIR
     Indication: Product used for unknown indication
     Route: 065
  14. LOPINAVIR\RITONAVIR [Concomitant]
     Active Substance: LOPINAVIR\RITONAVIR
     Indication: Product used for unknown indication
     Route: 065
  15. ENFUVIRTIDE [Concomitant]
     Active Substance: ENFUVIRTIDE
     Indication: Product used for unknown indication
     Route: 065
  16. ATAZANAVIR [Interacting]
     Active Substance: ATAZANAVIR
     Route: 005
  17. ATAZANAVIR [Interacting]
     Active Substance: ATAZANAVIR
     Route: 048
  18. ATAZANAVIR [Interacting]
     Active Substance: ATAZANAVIR
     Indication: HIV infection
     Route: 065
  19. ATAZANAVIR SULFATE [Interacting]
     Active Substance: ATAZANAVIR SULFATE
     Route: 005
  20. ATAZANAVIR SULFATE [Interacting]
     Active Substance: ATAZANAVIR SULFATE
     Route: 005
  21. ATAZANAVIR SULFATE [Interacting]
     Active Substance: ATAZANAVIR SULFATE
     Route: 005
  22. ATAZANAVIR SULFATE [Interacting]
     Active Substance: ATAZANAVIR SULFATE
     Route: 005
  23. ATAZANAVIR SULFATE [Interacting]
     Active Substance: ATAZANAVIR SULFATE
     Route: 048
  24. ATAZANAVIR SULFATE [Interacting]
     Active Substance: ATAZANAVIR SULFATE
     Route: 048
  25. ATAZANAVIR SULFATE [Interacting]
     Active Substance: ATAZANAVIR SULFATE
     Indication: HIV infection
     Route: 065
  26. ATAZANAVIR SULFATE [Interacting]
     Active Substance: ATAZANAVIR SULFATE
     Route: 065
  27. BUPROPION [Interacting]
     Active Substance: BUPROPION
     Route: 048
  28. BUPROPION [Interacting]
     Active Substance: BUPROPION
     Route: 048
  29. BUPROPION [Interacting]
     Active Substance: BUPROPION
     Indication: Bipolar disorder
     Route: 065
  30. BUPROPION HYDROBROMIDE [Interacting]
     Active Substance: BUPROPION HYDROBROMIDE
     Indication: Bipolar disorder
     Route: 048
  31. BUPROPION HYDROBROMIDE [Interacting]
     Active Substance: BUPROPION HYDROBROMIDE
     Route: 065
  32. BUPROPION HYDROCHLORIDE [Interacting]
     Active Substance: BUPROPION HYDROCHLORIDE
     Indication: Bipolar disorder
     Route: 048
  33. BUPROPION HYDROCHLORIDE [Interacting]
     Active Substance: BUPROPION HYDROCHLORIDE
     Route: 048
  34. BUPROPION HYDROCHLORIDE [Interacting]
     Active Substance: BUPROPION HYDROCHLORIDE
     Route: 048
  35. BUPROPION HYDROCHLORIDE [Interacting]
     Active Substance: BUPROPION HYDROCHLORIDE
     Route: 048
  36. BUPROPION HYDROCHLORIDE [Interacting]
     Active Substance: BUPROPION HYDROCHLORIDE
     Route: 048
  37. BUPROPION HYDROCHLORIDE [Interacting]
     Active Substance: BUPROPION HYDROCHLORIDE
     Route: 048
  38. BUPROPION HYDROCHLORIDE [Interacting]
     Active Substance: BUPROPION HYDROCHLORIDE
     Route: 048
  39. BUPROPION HYDROCHLORIDE [Interacting]
     Active Substance: BUPROPION HYDROCHLORIDE
     Route: 065
  40. BUPROPION HYDROCHLORIDE [Interacting]
     Active Substance: BUPROPION HYDROCHLORIDE
     Route: 065
  41. BUPROPION HYDROCHLORIDE [Interacting]
     Active Substance: BUPROPION HYDROCHLORIDE
     Route: 065
  42. BUPROPION HYDROCHLORIDE [Interacting]
     Active Substance: BUPROPION HYDROCHLORIDE
     Route: 065
  43. BUPROPION HYDROCHLORIDE [Interacting]
     Active Substance: BUPROPION HYDROCHLORIDE
     Route: 065
  44. CLONAZEPAM [Interacting]
     Active Substance: CLONAZEPAM
     Route: 048
  45. CLONAZEPAM [Interacting]
     Active Substance: CLONAZEPAM
     Route: 048
  46. CLONAZEPAM [Interacting]
     Active Substance: CLONAZEPAM
     Indication: Bipolar disorder
     Route: 065
  47. CLONAZEPAM [Interacting]
     Active Substance: CLONAZEPAM
     Route: 065
  48. EFAVIRENZ [Interacting]
     Active Substance: EFAVIRENZ
     Dosage: 1 DOSAGE FORM, Q12H
     Route: 048
  49. EFAVIRENZ [Interacting]
     Active Substance: EFAVIRENZ
     Dosage: 1 DOSAGE FORM, Q12H
     Route: 048
  50. EFAVIRENZ [Interacting]
     Active Substance: EFAVIRENZ
     Dosage: 1 DOSAGE FORM, BID (2 EVERY 1 DAY)
     Route: 048
  51. EFAVIRENZ [Interacting]
     Active Substance: EFAVIRENZ
     Dosage: 1 DOSAGE FORM, BID (2 EVERY 1 DAY)
     Route: 048
  52. EFAVIRENZ [Interacting]
     Active Substance: EFAVIRENZ
     Dosage: 400 MG, QD (1 EVERY 1 DAY)
     Route: 065
  53. EFAVIRENZ [Interacting]
     Active Substance: EFAVIRENZ
     Dosage: 400 MG, Q12H
     Route: 048
  54. EFAVIRENZ [Interacting]
     Active Substance: EFAVIRENZ
     Dosage: 400 MG, Q12H
     Route: 048
  55. EFAVIRENZ [Interacting]
     Active Substance: EFAVIRENZ
     Dosage: 400 MG, Q12H
     Route: 048
  56. EFAVIRENZ [Interacting]
     Active Substance: EFAVIRENZ
     Dosage: 400 MG, BID (2 EVERY 1 DAY)
     Route: 048
  57. EFAVIRENZ [Interacting]
     Active Substance: EFAVIRENZ
     Dosage: 400 MG, BID (2 EVERY 1 DAY)
     Route: 065
  58. EFAVIRENZ [Interacting]
     Active Substance: EFAVIRENZ
     Route: 065
  59. EFAVIRENZ [Interacting]
     Active Substance: EFAVIRENZ
     Dosage: 800 MG, QD (1 EVERY 1 DAY)
     Route: 065
  60. EFAVIRENZ [Interacting]
     Active Substance: EFAVIRENZ
     Indication: HIV infection
     Route: 048
  61. EFAVIRENZ [Interacting]
     Active Substance: EFAVIRENZ
     Route: 065
  62. EFAVIRENZ [Interacting]
     Active Substance: EFAVIRENZ
     Route: 065
  63. ISENTRESS [Interacting]
     Active Substance: RALTEGRAVIR POTASSIUM
     Dosage: 400 MG, Q12H
     Route: 048
  64. ISENTRESS [Interacting]
     Active Substance: RALTEGRAVIR POTASSIUM
     Dosage: 400 MG, BID
     Route: 048
  65. ISENTRESS [Interacting]
     Active Substance: RALTEGRAVIR POTASSIUM
     Dosage: 400 MG, BID
     Route: 048
  66. ISENTRESS [Interacting]
     Active Substance: RALTEGRAVIR POTASSIUM
     Dosage: 400 MG, BID
     Route: 065
  67. ISENTRESS [Interacting]
     Active Substance: RALTEGRAVIR POTASSIUM
     Dosage: 400 MG, BID
     Route: 065
  68. ISENTRESS [Interacting]
     Active Substance: RALTEGRAVIR POTASSIUM
     Indication: HIV infection
     Route: 048
  69. ISENTRESS [Interacting]
     Active Substance: RALTEGRAVIR POTASSIUM
     Route: 048
  70. ISENTRESS [Interacting]
     Active Substance: RALTEGRAVIR POTASSIUM
     Route: 048
  71. ISENTRESS [Interacting]
     Active Substance: RALTEGRAVIR POTASSIUM
     Route: 048
  72. ISENTRESS [Interacting]
     Active Substance: RALTEGRAVIR POTASSIUM
     Route: 048
  73. ISENTRESS [Interacting]
     Active Substance: RALTEGRAVIR POTASSIUM
     Route: 048
  74. ISENTRESS [Interacting]
     Active Substance: RALTEGRAVIR POTASSIUM
     Route: 048
  75. ISENTRESS [Interacting]
     Active Substance: RALTEGRAVIR POTASSIUM
     Route: 048
  76. KALETRA [Interacting]
     Active Substance: LOPINAVIR\RITONAVIR
     Route: 048
  77. KALETRA [Interacting]
     Active Substance: LOPINAVIR\RITONAVIR
     Route: 048
  78. KALETRA [Interacting]
     Active Substance: LOPINAVIR\RITONAVIR
     Route: 048
  79. KALETRA [Interacting]
     Active Substance: LOPINAVIR\RITONAVIR
     Indication: Bipolar disorder
     Route: 065
  80. KALETRA [Interacting]
     Active Substance: LOPINAVIR\RITONAVIR
     Indication: HIV infection
     Route: 065
  81. KALETRA [Interacting]
     Active Substance: LOPINAVIR\RITONAVIR
     Route: 065
  82. KALETRA [Interacting]
     Active Substance: LOPINAVIR\RITONAVIR
     Route: 065
  83. LAMIVUDINE [Interacting]
     Active Substance: LAMIVUDINE
     Route: 005
  84. LAMIVUDINE [Interacting]
     Active Substance: LAMIVUDINE
     Route: 005
  85. LAMIVUDINE [Interacting]
     Active Substance: LAMIVUDINE
     Route: 005
  86. LAMIVUDINE [Interacting]
     Active Substance: LAMIVUDINE
     Route: 005
  87. LAMIVUDINE [Interacting]
     Active Substance: LAMIVUDINE
     Route: 005
  88. LAMIVUDINE [Interacting]
     Active Substance: LAMIVUDINE
     Route: 005
  89. LAMIVUDINE [Interacting]
     Active Substance: LAMIVUDINE
     Route: 005
  90. LAMIVUDINE [Interacting]
     Active Substance: LAMIVUDINE
     Route: 005
  91. LAMIVUDINE [Interacting]
     Active Substance: LAMIVUDINE
     Indication: Bipolar disorder
     Route: 048
  92. LAMIVUDINE [Interacting]
     Active Substance: LAMIVUDINE
     Indication: HIV infection
     Route: 065
  93. LOPINAVIR\RITONAVIR [Interacting]
     Active Substance: LOPINAVIR\RITONAVIR
     Indication: HIV infection
     Route: 048
  94. LOPINAVIR\RITONAVIR [Interacting]
     Active Substance: LOPINAVIR\RITONAVIR
     Route: 048
  95. LOPINAVIR\RITONAVIR [Interacting]
     Active Substance: LOPINAVIR\RITONAVIR
     Route: 048
  96. QUETIAPINE [Interacting]
     Active Substance: QUETIAPINE
     Indication: Bipolar disorder
     Dosage: 2 DOSAGE FORM, QD
     Route: 048
  97. QUETIAPINE [Interacting]
     Active Substance: QUETIAPINE
     Dosage: 400 MG, Q2W (1 EVERY 2 WEEKS)
     Route: 048
  98. QUETIAPINE [Interacting]
     Active Substance: QUETIAPINE
     Dosage: 400 MG, QID
     Route: 048
  99. QUETIAPINE [Interacting]
     Active Substance: QUETIAPINE
     Route: 048
  100. QUETIAPINE [Interacting]
     Active Substance: QUETIAPINE
     Indication: HIV infection
     Route: 065
  101. QUETIAPINE FUMARATE [Interacting]
     Active Substance: QUETIAPINE FUMARATE
     Indication: Bipolar disorder
     Dosage: 2 DOSAGE FORM, QD (1 EVERY 1 DAY)
     Route: 048
  102. QUETIAPINE FUMARATE [Interacting]
     Active Substance: QUETIAPINE FUMARATE
     Dosage: 2 DOSAGE FORM, QD (1 EVERY 1 DAY)
     Route: 048
  103. QUETIAPINE FUMARATE [Interacting]
     Active Substance: QUETIAPINE FUMARATE
     Dosage: 400 MG, Q2W (1 EVERY 2 WEEKS)
     Route: 048
  104. QUETIAPINE FUMARATE [Interacting]
     Active Substance: QUETIAPINE FUMARATE
     Dosage: 400 MG, QID
     Route: 048
  105. QUETIAPINE FUMARATE [Interacting]
     Active Substance: QUETIAPINE FUMARATE
     Dosage: 400 MG, QID
     Route: 048
  106. QUETIAPINE FUMARATE [Interacting]
     Active Substance: QUETIAPINE FUMARATE
     Indication: HIV infection
     Route: 048
  107. QUETIAPINE FUMARATE [Interacting]
     Active Substance: QUETIAPINE FUMARATE
     Route: 048
  108. QUETIAPINE FUMARATE [Interacting]
     Active Substance: QUETIAPINE FUMARATE
     Route: 048
  109. QUETIAPINE FUMARATE [Interacting]
     Active Substance: QUETIAPINE FUMARATE
     Route: 048
  110. QUETIAPINE FUMARATE [Interacting]
     Active Substance: QUETIAPINE FUMARATE
     Route: 048
  111. QUETIAPINE FUMARATE [Interacting]
     Active Substance: QUETIAPINE FUMARATE
     Route: 048
  112. QUETIAPINE FUMARATE [Interacting]
     Active Substance: QUETIAPINE FUMARATE
     Route: 065
  113. QUETIAPINE FUMARATE [Interacting]
     Active Substance: QUETIAPINE FUMARATE
     Route: 065
  114. QUETIAPINE FUMARATE [Interacting]
     Active Substance: QUETIAPINE FUMARATE
     Route: 065
  115. RALTEGRAVIR [Interacting]
     Active Substance: RALTEGRAVIR
     Dosage: 400 MG, Q12H
     Route: 048
  116. RALTEGRAVIR [Interacting]
     Active Substance: RALTEGRAVIR
     Indication: HIV infection
     Dosage: 400 MG, BID (2 EVERY 1 DAY)
     Route: 065
  117. RALTEGRAVIR [Interacting]
     Active Substance: RALTEGRAVIR
     Route: 048
  118. RALTEGRAVIR [Interacting]
     Active Substance: RALTEGRAVIR
     Route: 065
  119. RALTEGRAVIR [Interacting]
     Active Substance: RALTEGRAVIR
     Route: 048
  120. RALTEGRAVIR [Interacting]
     Active Substance: RALTEGRAVIR
     Route: 048
  121. RALTEGRAVIR [Interacting]
     Active Substance: RALTEGRAVIR
     Route: 048
  122. RALTEGRAVIR [Interacting]
     Active Substance: RALTEGRAVIR
     Route: 048
  123. RALTEGRAVIR [Interacting]
     Active Substance: RALTEGRAVIR
     Route: 048
  124. RALTEGRAVIR POTASSIUM [Interacting]
     Active Substance: RALTEGRAVIR POTASSIUM
     Dosage: 1 DOSAGE FORM, Q12H
     Route: 048
  125. RALTEGRAVIR POTASSIUM [Interacting]
     Active Substance: RALTEGRAVIR POTASSIUM
     Dosage: 1 DOSAGE FORM, Q12H
     Route: 048
  126. RALTEGRAVIR POTASSIUM [Interacting]
     Active Substance: RALTEGRAVIR POTASSIUM
     Dosage: 1 DOSAGE FORM, BID (1 EVERY 1 DAY)
     Route: 048
  127. RALTEGRAVIR POTASSIUM [Interacting]
     Active Substance: RALTEGRAVIR POTASSIUM
     Route: 048
  128. RALTEGRAVIR POTASSIUM [Interacting]
     Active Substance: RALTEGRAVIR POTASSIUM
     Dosage: 2 MG, QD (1 EVERY 1 DAY)
     Route: 065
  129. RALTEGRAVIR POTASSIUM [Interacting]
     Active Substance: RALTEGRAVIR POTASSIUM
     Indication: HIV infection
     Dosage: 2 DOSAGE FORM (1 EVERY 1 DAY)
     Route: 048
  130. RALTEGRAVIR POTASSIUM [Interacting]
     Active Substance: RALTEGRAVIR POTASSIUM
     Dosage: 400 MG, Q12H
     Route: 048
  131. RALTEGRAVIR POTASSIUM [Interacting]
     Active Substance: RALTEGRAVIR POTASSIUM
     Dosage: 400 MG, Q12H
     Route: 048
  132. RALTEGRAVIR POTASSIUM [Interacting]
     Active Substance: RALTEGRAVIR POTASSIUM
     Dosage: 400 MG, Q12H
     Route: 048
  133. RALTEGRAVIR POTASSIUM [Interacting]
     Active Substance: RALTEGRAVIR POTASSIUM
     Dosage: 400 MG, Q12H
     Route: 048
  134. RALTEGRAVIR POTASSIUM [Interacting]
     Active Substance: RALTEGRAVIR POTASSIUM
     Dosage: 400 MG, Q12H
     Route: 065
  135. RALTEGRAVIR POTASSIUM [Interacting]
     Active Substance: RALTEGRAVIR POTASSIUM
     Dosage: 400 MG, BID (2 EVERY 1 DAY)
     Route: 048
  136. RALTEGRAVIR POTASSIUM [Interacting]
     Active Substance: RALTEGRAVIR POTASSIUM
     Dosage: 400 MG, BID (2 EVERY 1 DAY)
     Route: 048
  137. RALTEGRAVIR POTASSIUM [Interacting]
     Active Substance: RALTEGRAVIR POTASSIUM
     Dosage: 400 MG, BID (2 EVERY 1 DAY)
     Route: 048
  138. RALTEGRAVIR POTASSIUM [Interacting]
     Active Substance: RALTEGRAVIR POTASSIUM
     Dosage: 400 MG, BID (2 EVERY 1 DAY)
     Route: 048
  139. RALTEGRAVIR POTASSIUM [Interacting]
     Active Substance: RALTEGRAVIR POTASSIUM
     Dosage: 400 MG, BID (2 EVERY 1 DAY)
     Route: 048
  140. RALTEGRAVIR POTASSIUM [Interacting]
     Active Substance: RALTEGRAVIR POTASSIUM
     Dosage: 400 MG, BID (2 EVERY 1 DAY)
     Route: 065
  141. RALTEGRAVIR POTASSIUM [Interacting]
     Active Substance: RALTEGRAVIR POTASSIUM
     Dosage: 400 MG, BID (2 EVERY 1 DAY)
     Route: 065
  142. RALTEGRAVIR POTASSIUM [Interacting]
     Active Substance: RALTEGRAVIR POTASSIUM
     Route: 048
  143. RALTEGRAVIR POTASSIUM [Interacting]
     Active Substance: RALTEGRAVIR POTASSIUM
     Dosage: 400 ML, QD (1 EVERY 1 DAY)
     Route: 048
  144. RALTEGRAVIR POTASSIUM [Interacting]
     Active Substance: RALTEGRAVIR POTASSIUM
     Dosage: UNK, QD (1 EVERY 1 DAY)
     Route: 048
  145. RALTEGRAVIR POTASSIUM [Interacting]
     Active Substance: RALTEGRAVIR POTASSIUM
     Dosage: UNK, QD (1 EVERY 1 DAY)
     Route: 048
  146. RALTEGRAVIR POTASSIUM [Interacting]
     Active Substance: RALTEGRAVIR POTASSIUM
     Route: 048
  147. RALTEGRAVIR POTASSIUM [Interacting]
     Active Substance: RALTEGRAVIR POTASSIUM
     Route: 048
  148. RALTEGRAVIR POTASSIUM [Interacting]
     Active Substance: RALTEGRAVIR POTASSIUM
     Route: 065
  149. SERTRALINE HYDROCHLORIDE [Interacting]
     Active Substance: SERTRALINE HYDROCHLORIDE
     Dosage: 400 MG, Q12H
     Route: 048
  150. SERTRALINE HYDROCHLORIDE [Interacting]
     Active Substance: SERTRALINE HYDROCHLORIDE
     Dosage: 400 MG, BID (2 EVERY 1 DAY)
     Route: 048
  151. SERTRALINE HYDROCHLORIDE [Interacting]
     Active Substance: SERTRALINE HYDROCHLORIDE
     Dosage: 400 MG, BID (2 EVERY 1 DAY)
     Route: 048
  152. SERTRALINE HYDROCHLORIDE [Interacting]
     Active Substance: SERTRALINE HYDROCHLORIDE
     Dosage: 400 MG, BID (2 EVERY 1 DAY)
     Route: 065
  153. SERTRALINE HYDROCHLORIDE [Interacting]
     Active Substance: SERTRALINE HYDROCHLORIDE
     Dosage: 400 UNK, BID
     Route: 065
  154. SERTRALINE HYDROCHLORIDE [Interacting]
     Active Substance: SERTRALINE HYDROCHLORIDE
     Indication: Bipolar disorder
     Route: 048
  155. SERTRALINE HYDROCHLORIDE [Interacting]
     Active Substance: SERTRALINE HYDROCHLORIDE
     Route: 048
  156. SERTRALINE HYDROCHLORIDE [Interacting]
     Active Substance: SERTRALINE HYDROCHLORIDE
     Route: 048
  157. SERTRALINE HYDROCHLORIDE [Interacting]
     Active Substance: SERTRALINE HYDROCHLORIDE
     Route: 048
  158. SERTRALINE HYDROCHLORIDE [Interacting]
     Active Substance: SERTRALINE HYDROCHLORIDE
     Indication: Bipolar disorder
     Route: 065
  159. SERTRALINE HYDROCHLORIDE [Interacting]
     Active Substance: SERTRALINE HYDROCHLORIDE
     Indication: HIV infection
     Route: 065
  160. SERTRALINE HYDROCHLORIDE [Interacting]
     Active Substance: SERTRALINE HYDROCHLORIDE
     Route: 065
  161. SERTRALINE HYDROCHLORIDE [Interacting]
     Active Substance: SERTRALINE HYDROCHLORIDE
     Route: 065
  162. VALPROATE SODIUM [Interacting]
     Active Substance: VALPROATE SODIUM
     Indication: Product used for unknown indication
     Route: 065
  163. SUSTIVA [Interacting]
     Active Substance: EFAVIRENZ
     Dosage: 400 MG, Q12H
     Route: 048
  164. SUSTIVA [Interacting]
     Active Substance: EFAVIRENZ
     Dosage: 400 MG, Q12H
     Route: 065
  165. SUSTIVA [Interacting]
     Active Substance: EFAVIRENZ
     Dosage: 400 MG, BID (2 EVERY 1 DAY)
     Route: 048
  166. SUSTIVA [Interacting]
     Active Substance: EFAVIRENZ
     Indication: Product used for unknown indication
     Dosage: 400 MG, BID (2 EVERY 1 DAY)
     Route: 065
  167. SUSTIVA [Interacting]
     Active Substance: EFAVIRENZ
     Route: 048
  168. SUSTIVA [Interacting]
     Active Substance: EFAVIRENZ
     Route: 065
  169. SUSTIVA [Interacting]
     Active Substance: EFAVIRENZ
     Route: 048
  170. SUSTIVA [Interacting]
     Active Substance: EFAVIRENZ
     Dosage: 800 MG, QD
     Route: 048
  171. SUSTIVA [Interacting]
     Active Substance: EFAVIRENZ
     Dosage: 800 MG, QD
     Route: 065
  172. SUSTIVA [Interacting]
     Active Substance: EFAVIRENZ
     Dosage: 800 MG, BID
     Route: 048
  173. SUSTIVA [Interacting]
     Active Substance: EFAVIRENZ
     Route: 048
  174. SUSTIVA [Interacting]
     Active Substance: EFAVIRENZ
     Route: 048
  175. SUSTIVA [Interacting]
     Active Substance: EFAVIRENZ
     Route: 048
  176. SUSTIVA [Interacting]
     Active Substance: EFAVIRENZ
     Route: 065
  177. VALPROIC ACID [Interacting]
     Active Substance: VALPROIC ACID
     Route: 048
  178. VALPROIC ACID [Interacting]
     Active Substance: VALPROIC ACID
     Route: 048
  179. VALPROIC ACID [Interacting]
     Active Substance: VALPROIC ACID
     Route: 065
  180. VALPROIC ACID [Interacting]
     Active Substance: VALPROIC ACID
     Indication: Bipolar disorder
     Route: 065
  181. ZOPICLONE [Interacting]
     Active Substance: ZOPICLONE
     Route: 048
  182. ZOPICLONE [Interacting]
     Active Substance: ZOPICLONE
     Route: 048
  183. ZOPICLONE [Interacting]
     Active Substance: ZOPICLONE
     Route: 048
  184. ZOPICLONE [Interacting]
     Active Substance: ZOPICLONE
     Route: 048
  185. ZOPICLONE [Interacting]
     Active Substance: ZOPICLONE
     Route: 048
  186. ZOPICLONE [Interacting]
     Active Substance: ZOPICLONE
     Indication: Bipolar disorder
     Route: 065
  187. ZOPICLONE [Interacting]
     Active Substance: ZOPICLONE
     Route: 065

REACTIONS (17)
  - Depression [Fatal]
  - Drug interaction [Fatal]
  - Loss of personal independence in daily activities [Fatal]
  - Anxiety [Fatal]
  - Depression suicidal [Fatal]
  - Depressive symptom [Fatal]
  - Paranoia [Fatal]
  - Psychiatric decompensation [Fatal]
  - Psychomotor skills impaired [Fatal]
  - Psychotic disorder [Fatal]
  - Suicidal ideation [Fatal]
  - Tearfulness [Fatal]
  - Off label use [Fatal]
  - Prescribed overdose [Fatal]
  - Incorrect route of product administration [Fatal]
  - Intentional product use issue [Fatal]
  - Product use in unapproved indication [Fatal]
